FAERS Safety Report 13240820 (Version 1)
Quarter: 2017Q1

REPORT INFORMATION
  Report Type: Spontaneous
  Country: US (occurrence: US)
  Receive Date: 20170216
  Receipt Date: 20170216
  Transmission Date: 20170428
  Serious: No
  Sender: FDA-Public Use
  Company Number: US-SHIRE-US201703014

PATIENT
  Age: 40 Year
  Sex: Female
  Weight: 63.39 kg

DRUGS (2)
  1. LIALDA [Suspect]
     Active Substance: MESALAMINE
     Indication: COLITIS ULCERATIVE
     Dosage: 4.8 G, 1X/DAY:QD (4 TABLETS)
     Route: 048
     Dates: start: 201611, end: 20170208
  2. LIALDA [Suspect]
     Active Substance: MESALAMINE
     Dosage: 3.6 G, 1X/DAY:QD (3 TABLETS)
     Route: 048
     Dates: start: 20170208

REACTIONS (1)
  - Joint swelling [Not Recovered/Not Resolved]

NARRATIVE: CASE EVENT DATE: 201612
